FAERS Safety Report 20011125 (Version 1)
Quarter: 2021Q4

REPORT INFORMATION
  Report Type: Spontaneous
  Country: US (occurrence: US)
  Receive Date: 20211029
  Receipt Date: 20211029
  Transmission Date: 20220303
  Serious: No
  Sender: FDA-Public Use
  Company Number: US-DRREDDYS-SPO/USA/21/0142895

PATIENT
  Age: 72 Year
  Sex: Male

DRUGS (1)
  1. ZENATANE [Suspect]
     Active Substance: ISOTRETINOIN
     Indication: Product used for unknown indication
     Dosage: ONE TO TWO PILLS IN A WEEK
     Dates: start: 20210706, end: 20210805

REACTIONS (3)
  - Acne [Unknown]
  - Product administration error [Unknown]
  - Incorrect dose administered [Unknown]
